FAERS Safety Report 13300331 (Version 9)
Quarter: 2017Q3

REPORT INFORMATION
  Report Type: Spontaneous
  Country: US (occurrence: US)
  Receive Date: 20170307
  Receipt Date: 20170929
  Transmission Date: 20171127
  Serious: Yes (Other)
  Sender: FDA-Public Use
  Company Number: PHEH2017US006697

PATIENT
  Sex: Female
  Weight: 58.5 kg

DRUGS (2)
  1. ZOFRAN ODT [Suspect]
     Active Substance: ONDANSETRON HYDROCHLORIDE
     Indication: PRODUCT USED FOR UNKNOWN INDICATION
     Route: 048
  2. ONDANSETRON AUROBINDO [Suspect]
     Active Substance: ONDANSETRON HYDROCHLORIDE
     Indication: VOMITING IN PREGNANCY
     Dosage: 4 MG, TID
     Route: 048
     Dates: start: 20150818, end: 20150828

REACTIONS (18)
  - Perinatal depression [Unknown]
  - Pain [Unknown]
  - Bronchitis [Unknown]
  - Influenza [Unknown]
  - Panic attack [Unknown]
  - Muscle spasms [Unknown]
  - Anxiety [Unknown]
  - Dysuria [Unknown]
  - Maternal exposure during pregnancy [Unknown]
  - Vulvovaginitis [Unknown]
  - Diarrhoea [Unknown]
  - Product use issue [Unknown]
  - Infection [Unknown]
  - Contusion [Unknown]
  - Injury [Unknown]
  - Bronchial hyperreactivity [Unknown]
  - Emotional distress [Unknown]
  - Laryngitis [Unknown]
